FAERS Safety Report 4598166-6 (Version None)
Quarter: 2005Q1

REPORT INFORMATION
  Report Type: 
  Country: None (occurrence: None)
  Receive Date: 20050301
  Receipt Date: 20050301
  Transmission Date: 20050727
  Serious: Yes (Other)
  Sender: FDA-Public Use
  Company Number: None

PATIENT
  Sex: Male
  Weight: 82.3 kg

DRUGS (2)
  1. CYTARABINE [Suspect]
     Dosage: 100MG/M2/DAY
     Dates: start: 20050204, end: 20050210
  2. DAUNORUBICIN 60MG/M2/DAY BY IV PUSH [Suspect]
     Dosage: 60MG/M2/DAY BY IV PUSH
     Route: 042
     Dates: start: 20050204

REACTIONS (2)
  - CHILLS [None]
  - FEBRILE NEUTROPENIA [None]
